FAERS Safety Report 7305273-3 (Version None)
Quarter: 2011Q1

REPORT INFORMATION
  Report Type: 
  Country: None (occurrence: None)
  Receive Date: 20110222
  Receipt Date: 20110207
  Transmission Date: 20110831
  Serious: Yes (Other)
  Sender: FDA-Public Use
  Company Number: SE-PFIZER INC-2011034509

PATIENT
  Age: 70 Year
  Sex: Female

DRUGS (10)
  1. CORDARONE [Suspect]
     Indication: ATRIAL FIBRILLATION
     Dosage: 200 MG, 1X/DAY
     Route: 048
     Dates: start: 20091102, end: 20100421
  2. ENALAPRIL MALEATE [Suspect]
     Indication: CARDIAC DISORDER
     Dosage: 5 MG, DAILY
     Route: 048
  3. SELOKEN ZOC [Concomitant]
  4. KALCIPOS-D [Concomitant]
  5. SIMVASTATIN [Concomitant]
  6. BURINEX [Concomitant]
  7. ENALAPRIL MALEATE [Suspect]
     Dosage: 10 MG, DAILY
     Route: 048
     Dates: start: 20100407
  8. WARAN [Concomitant]
  9. SPIRONOLACTONE [Suspect]
     Indication: OEDEMA PERIPHERAL
     Dosage: 25 MG, DAILY
     Route: 048
     Dates: end: 20100407
  10. ENALAPRIL MALEATE [Suspect]
     Dosage: 20 MG, DAILY
     Route: 048

REACTIONS (3)
  - BLOOD CREATININE INCREASED [None]
  - HYPOPLASTIC ANAEMIA [None]
  - APLASTIC ANAEMIA [None]
